FAERS Safety Report 11788575 (Version 1)
Quarter: 2015Q4

REPORT INFORMATION
  Report Type: Spontaneous
  Country: US (occurrence: None)
  Receive Date: 20151130
  Receipt Date: 20151130
  Transmission Date: 20160305
  Serious: No
  Sender: FDA-Public Use
  Company Number: None

PATIENT
  Age: 30 Year
  Sex: Female
  Weight: 83.01 kg

DRUGS (2)
  1. TROKENDI XR [Concomitant]
     Active Substance: TOPIRAMATE
  2. ZALEPLON 10 MG ROXANE LABS [Suspect]
     Active Substance: ZALEPLON
     Indication: INSOMNIA
     Dosage: 1 PILL
     Route: 048
     Dates: start: 20151105, end: 20151106

REACTIONS (2)
  - Feeling abnormal [None]
  - Drug ineffective [None]

NARRATIVE: CASE EVENT DATE: 20151106
